FAERS Safety Report 6862642-3 (Version None)
Quarter: 2010Q3

REPORT INFORMATION
  Report Type: 
  Country: None (occurrence: None)
  Receive Date: 20100721
  Receipt Date: 20100713
  Transmission Date: 20110219
  Serious: Yes (Other)
  Sender: FDA-Public Use
  Company Number: GXKR2010GB07763

PATIENT
  Age: 63 Year
  Sex: Female

DRUGS (10)
  1. PRAVASTATIN [Suspect]
     Indication: HYPERCHOLESTEROLAEMIA
     Dosage: 40 MG, UNK
     Route: 048
  2. ACETYLSALICYLIC ACID [Concomitant]
  3. BENDROFLUAZIDE [Concomitant]
  4. DOSULEPIN [Concomitant]
  5. DOXAZOSIN [Concomitant]
  6. GLICLAZIDE [Concomitant]
  7. GLUCOSAMINE HYDROCHLORIDE [Concomitant]
  8. LISINOPRIL [Concomitant]
  9. PROPRANOLOL [Concomitant]
  10. ROSIGLITAZONE [Concomitant]

REACTIONS (4)
  - DIPLOPIA [None]
  - DIZZINESS [None]
  - MACULAR DEGENERATION [None]
  - VISION BLURRED [None]
